FAERS Safety Report 19272219 (Version 1)
Quarter: 2021Q2

REPORT INFORMATION
  Report Type: Spontaneous
  Country: US (occurrence: US)
  Receive Date: 20210518
  Receipt Date: 20210518
  Transmission Date: 20210717
  Serious: Yes (Other)
  Sender: FDA-Public Use
  Company Number: US-SUNOVION-2021SUN001828

PATIENT
  Age: 78 Year
  Sex: Male

DRUGS (1)
  1. BROVANA [Suspect]
     Active Substance: ARFORMOTEROL TARTRATE
     Dosage: 15 ?G, 2 ML BID
     Route: 055

REACTIONS (3)
  - Cough [Unknown]
  - Expired product administered [Unknown]
  - Tracheomalacia [Unknown]
